FAERS Safety Report 10459107 (Version 1)
Quarter: 2014Q3

REPORT INFORMATION
  Report Type: Spontaneous
  Country: US (occurrence: None)
  Receive Date: 20140916
  Receipt Date: 20140916
  Transmission Date: 20150326
  Serious: Yes (Other)
  Sender: FDA-Public Use
  Company Number: None

PATIENT
  Age: 70 Year
  Sex: Male
  Weight: 87.09 kg

DRUGS (6)
  1. ATORVASTATIN CALCIUM. [Concomitant]
     Active Substance: ATORVASTATIN CALCIUM
  2. FISH OIL [Concomitant]
     Active Substance: FISH OIL
  3. XARELTO [Suspect]
     Active Substance: RIVAROXABAN
     Indication: ATRIAL FIBRILLATION
     Dosage: ONE PILL  QD  ORAL
     Route: 048
     Dates: start: 20140701, end: 20140904
  4. OMEPRAZOLE. [Concomitant]
     Active Substance: OMEPRAZOLE
  5. CARVEDILOL. [Concomitant]
     Active Substance: CARVEDILOL
  6. LISINOPRIL. [Concomitant]
     Active Substance: LISINOPRIL

REACTIONS (2)
  - Rectal haemorrhage [None]
  - Haemarthrosis [None]

NARRATIVE: CASE EVENT DATE: 20140820
